FAERS Safety Report 5151476-6 (Version None)
Quarter: 2006Q4

REPORT INFORMATION
  Report Type: 
  Country: None (occurrence: None)
  Receive Date: 20061114
  Receipt Date: 20061114
  Transmission Date: 20070319
  Serious: Yes (Hospitalization, Other)
  Sender: FDA-Public Use
  Company Number: None

PATIENT
  Age: 64 Year
  Sex: Female
  Weight: 63.5036 kg

DRUGS (2)
  1. SUPER STRENGTH ACETAMINOPHEN   500 MG     PERRIGO/CVS PHARMACY [Suspect]
     Indication: HEADACHE
     Dosage: 500 MG   4 HOURS  PO
     Route: 048
     Dates: start: 20060901, end: 20061110
  2. SUPER STRENGTH ACETAMINOPHEN   500 MG     PERRIGO/CVS PHARMACY [Suspect]
     Indication: MYALGIA
     Dosage: 500 MG   4 HOURS  PO
     Route: 048
     Dates: start: 20060901, end: 20061110

REACTIONS (8)
  - ABDOMINAL DISTENSION [None]
  - ABDOMINAL PAIN UPPER [None]
  - CYSTITIS [None]
  - DISEASE RECURRENCE [None]
  - GASTROINTESTINAL INFLAMMATION [None]
  - HEADACHE [None]
  - PHARMACEUTICAL PRODUCT COMPLAINT [None]
  - POOR QUALITY DRUG ADMINISTERED [None]
